FAERS Safety Report 9690933 (Version 3)
Quarter: 2013Q4

REPORT INFORMATION
  Report Type: Spontaneous
  Country: JP (occurrence: JP)
  Receive Date: 20131115
  Receipt Date: 20131212
  Transmission Date: 20140711
  Serious: No
  Sender: FDA-Public Use
  Company Number: JP-PFIZER INC-2013325454

PATIENT
  Age: 81 Year
  Sex: Female

DRUGS (3)
  1. LYRICA [Suspect]
     Indication: POST HERPETIC NEURALGIA
     Dosage: 150 MG, DAILY
     Route: 048
  2. VIVIANT [Suspect]
     Indication: OSTEOPOROSIS
     Dosage: 150 MG, DAILY
     Route: 048
     Dates: start: 201301
  3. LANDEL [Suspect]
     Indication: HYPERTENSION
     Dosage: UNK
     Route: 048
     Dates: start: 201301

REACTIONS (1)
  - Oedema peripheral [Unknown]
